FAERS Safety Report 9707198 (Version 1)
Quarter: 2013Q4

REPORT INFORMATION
  Report Type: Spontaneous
  Country: US (occurrence: US)
  Receive Date: 20131125
  Receipt Date: 20131125
  Transmission Date: 20140711
  Serious: Yes (Other)
  Sender: FDA-Public Use
  Company Number: US-TEVA-445560USA

PATIENT
  Sex: Male

DRUGS (3)
  1. MODAFINIL [Suspect]
     Indication: NARCOLEPSY
     Dosage: REPORTED AS BOTH 2 TABS IN AM AND 1 TAB IN AFTERNOON AND 1 TABLET TWICE DAILY
  2. MODAFINIL [Suspect]
     Indication: FATIGUE
  3. MODAFINIL [Suspect]
     Indication: SOMNOLENCE

REACTIONS (21)
  - Mental impairment [Unknown]
  - Convulsion [Unknown]
  - Prostate cancer metastatic [Unknown]
  - Malaise [Unknown]
  - Nausea [Unknown]
  - Fatigue [Unknown]
  - Asthenia [Unknown]
  - Nervousness [Unknown]
  - Somnolence [Unknown]
  - Feeling abnormal [Unknown]
  - Back pain [Unknown]
  - Dysarthria [Unknown]
  - Memory impairment [Unknown]
  - Dysphonia [Unknown]
  - Dizziness [Unknown]
  - Malaise [Unknown]
  - Tremor [Unknown]
  - Feeling abnormal [Unknown]
  - Nervous system disorder [Unknown]
  - Tremor [Unknown]
  - Incorrect dose administered [Unknown]
